FAERS Safety Report 15360652 (Version 1)
Quarter: 2018Q3

REPORT INFORMATION
  Report Type: Spontaneous
  Country: US (occurrence: US)
  Receive Date: 20180907
  Receipt Date: 20180907
  Transmission Date: 20181010
  Serious: Yes (Other)
  Sender: FDA-Public Use
  Company Number: US-TEVA-2018-US-951504

PATIENT
  Sex: Male

DRUGS (1)
  1. LORAZEPAM. [Suspect]
     Active Substance: LORAZEPAM
     Indication: ANXIETY
     Route: 065
     Dates: start: 2008, end: 20180821

REACTIONS (7)
  - Disturbance in attention [Unknown]
  - Cyst [Recovered/Resolved]
  - Anxiety [Unknown]
  - Tooth infection [Recovered/Resolved]
  - Poor quality sleep [Unknown]
  - Myocardial infarction [Unknown]
  - Feeling abnormal [Unknown]

NARRATIVE: CASE EVENT DATE: 20160609
